FAERS Safety Report 8511727-4 (Version None)
Quarter: 2012Q3

REPORT INFORMATION
  Report Type: 
  Country: None (occurrence: None)
  Receive Date: 20120710
  Receipt Date: 20120710
  Transmission Date: 20120928
  Serious: Yes (Hospitalization)
  Sender: FDA-Public Use
  Company Number: None

PATIENT
  Sex: Female
  Weight: 51.7 kg

DRUGS (1)
  1. AVASTIN [Suspect]
     Indication: NON-SMALL CELL LUNG CANCER
     Dosage: ONCE IV
     Route: 042
     Dates: start: 20120613

REACTIONS (3)
  - PULMONARY EMBOLISM [None]
  - BACK PAIN [None]
  - PAINFUL RESPIRATION [None]
